FAERS Safety Report 5614559-X (Version None)
Quarter: 2008Q1

REPORT INFORMATION
  Report Type: 
  Country: None (occurrence: None)
  Receive Date: 20080205
  Receipt Date: 20080125
  Transmission Date: 20080703
  Serious: Yes (Life-Threatening)
  Sender: FDA-Public Use
  Company Number: NL-BOEHRINGER INGELHEIM GMBH, GERMANY-2008-NL-00070NL

PATIENT

DRUGS (3)
  1. PRAMIPEXOLE DIHYDROCHLORIDE [Suspect]
     Indication: RESTLESS LEGS SYNDROME
  2. ANTIDEPRESSANTS [Concomitant]
  3. BENZODIAZEPINE [Concomitant]

REACTIONS (1)
  - TERMINAL STATE [None]
